FAERS Safety Report 9106023 (Version 2)
Quarter: 2013Q2

REPORT INFORMATION
  Report Type: Spontaneous
  Country: JP (occurrence: JP)
  Receive Date: 20130221
  Receipt Date: 20130419
  Transmission Date: 20140414
  Serious: Yes (Other)
  Sender: FDA-Public Use
  Company Number: JP-ASTELLAS-2013JP002032

PATIENT
  Age: 80 Year
  Sex: Male

DRUGS (2)
  1. BETANIS [Suspect]
     Indication: HYPERTONIC BLADDER
     Dosage: 25 MG, UID/QD
     Route: 048
     Dates: start: 20121218, end: 20130213
  2. STAYBLA [Suspect]
     Indication: HYPERTONIC BLADDER
     Dosage: 0.2 MG, UNKNOWN/D
     Route: 048
     Dates: end: 20121218

REACTIONS (1)
  - Delirium [Recovered/Resolved]
